FAERS Safety Report 24609007 (Version 10)
Quarter: 2025Q4

REPORT INFORMATION
  Report Type: Spontaneous
  Country: US (occurrence: US)
  Receive Date: 20241112
  Receipt Date: 20251214
  Transmission Date: 20260118
  Serious: No
  Sender: PFIZER
  Company Number: US-PFIZER INC-PV202400090536

PATIENT
  Age: 59 Year
  Sex: Female

DRUGS (4)
  1. TUKYSA [Suspect]
     Active Substance: TUCATINIB
     Indication: Breast cancer female
     Dosage: 150 MG, 2X/DAY
  2. TUKYSA [Suspect]
     Active Substance: TUCATINIB
     Dosage: 50 MG, 2X/DAY
  3. TUKYSA [Suspect]
     Active Substance: TUCATINIB
     Dosage: TAKE TWO 150MG TABLETS
     Route: 048
  4. TUKYSA [Suspect]
     Active Substance: TUCATINIB
     Dosage: 2 TABLET IN THE MORNING, 1 TABLET IN THE EVENING/ 300 MG IN THE MORNING, 150 MG NIGHTLY

REACTIONS (5)
  - Urinary tract infection [Unknown]
  - Diarrhoea [Recovered/Resolved]
  - Brain fog [Unknown]
  - Influenza [Unknown]
  - Off label use [Unknown]
